FAERS Safety Report 5366955-6 (Version None)
Quarter: 2007Q2

REPORT INFORMATION
  Report Type: 
  Country: None (occurrence: None)
  Receive Date: 20070622
  Receipt Date: 20070618
  Transmission Date: 20071010
  Serious: Yes (Other)
  Sender: FDA-Public Use
  Company Number: CHWYE867218JUN07

PATIENT
  Age: 62 Year
  Sex: Male

DRUGS (2)
  1. EFFEXOR [Suspect]
     Indication: DEPRESSION
     Route: 048
  2. ZYPREXA [Concomitant]
     Route: 048

REACTIONS (2)
  - AORTIC VALVE INCOMPETENCE [None]
  - FATIGUE [None]
